FAERS Safety Report 6104438-6 (Version None)
Quarter: 2009Q1

REPORT INFORMATION
  Report Type: 
  Country: None (occurrence: None)
  Receive Date: 20090305
  Receipt Date: 20090224
  Transmission Date: 20090719
  Serious: Yes (Disabling)
  Sender: FDA-Public Use
  Company Number: PHEH2009US02028

PATIENT
  Sex: Female
  Weight: 57.143 kg

DRUGS (35)
  1. RECLAST [Suspect]
     Indication: OSTEOPOROSIS
     Dosage: 5 MG, UNK
     Route: 042
     Dates: start: 20080823
  2. PROTONIX [Concomitant]
     Dosage: 40 MG, QD
     Route: 048
  3. ACIDOPHILUS [Concomitant]
     Dosage: 90 MG, QD
     Route: 048
  4. LACTOBACILLUS BIFIDUS [Concomitant]
     Dosage: 25 MG, QD
     Route: 048
  5. ZOCOR [Concomitant]
     Dosage: 20 MG, QD
     Route: 048
  6. XANAX [Concomitant]
     Dosage: 0.25 MG, BID PRN
     Route: 048
  7. PAXIL [Concomitant]
     Dosage: 10 MG, QD
     Route: 048
  8. LOTREL [Concomitant]
     Dosage: 5/40 MG
     Route: 048
  9. NASACORT AQ [Concomitant]
     Dosage: 55 MCG, TWO TIMES BID PRN
     Route: 045
  10. XYZAL [Concomitant]
     Dosage: 5 MG, QD
     Route: 048
  11. CLARITIN [Concomitant]
     Dosage: 10 MG, QD PRN
     Route: 048
  12. ANTIVERT [Concomitant]
     Dosage: 25 MG, QID PRN
     Route: 048
  13. ULTRACET [Concomitant]
     Dosage: 37.5/325 MG, Q4-6H PRN
     Route: 048
  14. LYRICA [Concomitant]
     Dosage: 50 MG, TID
     Route: 048
  15. LUMIGAN [Concomitant]
     Dosage: 0.03 %, UNK
  16. TRAVATAN [Concomitant]
     Dosage: 0.004 %, UNK
  17. RESTASIS [Concomitant]
     Dosage: 0.05 %, UNK
  18. XALATAN [Concomitant]
     Dosage: 0.005 %,  ONE DROP QD
  19. ZYLET [Concomitant]
     Dosage: 0.3/0.5 %, UNK
  20. RHINOCORT [Concomitant]
     Dosage: 32 MCG, TWO TIMES QD
     Route: 045
  21. REFRESH PLUS [Concomitant]
     Dosage: 0.5 %, UNK
  22. ELAVIL [Concomitant]
     Dosage: 10 MG, QHS
     Route: 048
  23. MIRALAX [Concomitant]
     Dosage: 17 G (100%), UNK
  24. HERBAL EXTRACTS NOS [Concomitant]
  25. TED STOCKINGS [Concomitant]
  26. LUTEIN [Concomitant]
     Dosage: 15/0.7 MG, QD
     Route: 048
  27. ALREX [Concomitant]
     Dosage: 0.2 %, ONE DROP QD
  28. PATANOL [Concomitant]
     Dosage: 0.1%, ONE DROP BID
  29. SIMILASAN [Concomitant]
  30. RUTIN-C [Concomitant]
     Dosage: 500 MG, QD
     Route: 048
  31. VITAMIN E [Concomitant]
     Dosage: 400 U, BID
     Route: 048
  32. CALCIUM WITH VITAMIN D [Concomitant]
     Dosage: 600 MG/400, TWO TABS BID
     Route: 048
  33. ARTIFICIAL TEARS [Concomitant]
     Dosage: UNK
  34. TYLENOL (CAPLET) [Concomitant]
     Dosage: 500 MG, TWO TABS QD
     Route: 048
  35. CYANOCOBALAMIN [Concomitant]
     Dosage: 1 ML, QMO
     Route: 058

REACTIONS (4)
  - ASTHENIA [None]
  - MYALGIA [None]
  - NAUSEA [None]
  - TREMOR [None]
